FAERS Safety Report 8560475-3 (Version None)
Quarter: 2012Q3

REPORT INFORMATION
  Report Type: 
  Country: None (occurrence: None)
  Receive Date: 20120723
  Receipt Date: 20120717
  Transmission Date: 20120928
  Serious: Yes (Life-Threatening)
  Sender: FDA-Public Use
  Company Number: 2012-3317

PATIENT
  Age: 81 Year
  Sex: Female
  Weight: 66.7 kg

DRUGS (2)
  1. DYSPORT [Suspect]
     Indication: OFF LABEL USE
     Dosage: 150 UNITS (150 UNITS, SINGLE CYCLE), PARENTERAL
     Route: 051
     Dates: start: 20120419, end: 20120419
  2. DYSPORT [Suspect]
     Indication: HEAD TITUBATION
     Dosage: 150 UNITS (150 UNITS, SINGLE CYCLE), PARENTERAL
     Route: 051
     Dates: start: 20120419, end: 20120419

REACTIONS (5)
  - HYPOAESTHESIA [None]
  - OFF LABEL USE [None]
  - FATIGUE [None]
  - MUSCULAR WEAKNESS [None]
  - DYSPNOEA [None]
